FAERS Safety Report 11230710 (Version 4)
Quarter: 2015Q3

REPORT INFORMATION
  Report Type: Report from Study
  Country: US (occurrence: US)
  Receive Date: 20150701
  Receipt Date: 20150812
  Transmission Date: 20151125
  Serious: Yes (Other)
  Sender: FDA-Public Use
  Company Number: US-SA-2015SA092192

PATIENT
  Age: 48 Year
  Sex: Female

DRUGS (3)
  1. AUBAGIO [Suspect]
     Active Substance: TERIFLUNOMIDE
     Indication: MULTIPLE SCLEROSIS
     Route: 048
     Dates: end: 20150627
  2. RESTASIS [Concomitant]
     Active Substance: CYCLOSPORINE
  3. AUBAGIO [Suspect]
     Active Substance: TERIFLUNOMIDE
     Indication: MULTIPLE SCLEROSIS
     Route: 048
     Dates: start: 20150530

REACTIONS (18)
  - Cough [Unknown]
  - Pain [Unknown]
  - Memory impairment [Unknown]
  - Dyskinesia [Unknown]
  - Distractibility [Unknown]
  - Paraesthesia [Unknown]
  - Logorrhoea [Unknown]
  - Unevaluable event [Unknown]
  - Speech disorder [Unknown]
  - Choking [Unknown]
  - Multiple sclerosis relapse [Not Recovered/Not Resolved]
  - Drug dose omission [Unknown]
  - Cognitive disorder [Unknown]
  - Urinary incontinence [Unknown]
  - Dysgraphia [Unknown]
  - Visual impairment [Unknown]
  - Fatigue [Unknown]
  - Neuropathy peripheral [Unknown]

NARRATIVE: CASE EVENT DATE: 2015
